FAERS Safety Report 8185336-3 (Version None)
Quarter: 2012Q1

REPORT INFORMATION
  Report Type: 
  Country: None (occurrence: None)
  Receive Date: 20120305
  Receipt Date: 20120228
  Transmission Date: 20120608
  Serious: Yes (Disabling)
  Sender: FDA-Public Use
  Company Number: PHHY2012CH017156

PATIENT
  Age: 83 Year
  Sex: Male

DRUGS (4)
  1. TAXOTERE [Suspect]
     Route: 042
  2. ZOMETA [Suspect]
     Dosage: 4 MG, QMO
     Route: 042
     Dates: start: 20101020, end: 20110615
  3. PREDNISONE [Suspect]
     Dosage: UNK UKN, UNK
  4. ATACAND [Concomitant]
     Dosage: UNK UKN, UNK
     Route: 048

REACTIONS (3)
  - FISTULA [None]
  - OSTEONECROSIS OF JAW [None]
  - INFLAMMATION [None]
